FAERS Safety Report 20489177 (Version 2)
Quarter: 2022Q1

REPORT INFORMATION
  Report Type: Other
  Country: US (occurrence: US)
  Receive Date: 20220218
  Receipt Date: 20220309
  Transmission Date: 20220423
  Serious: Yes (Death, Hospitalization, Other)
  Sender: FDA-Public Use
  Company Number: US-NEUROCRINE BIOSCIENCES INC.-2022NBI00914

PATIENT

DRUGS (27)
  1. INGREZZA [Suspect]
     Active Substance: VALBENAZINE
     Indication: Tardive dyskinesia
     Dosage: 80 MILLIGRAM, QD
     Route: 048
     Dates: start: 202003, end: 20220129
  2. INGREZZA [Suspect]
     Active Substance: VALBENAZINE
     Dosage: 40 MILLIGRAM
     Route: 048
     Dates: start: 2020, end: 2020
  3. SERTRALINE [Concomitant]
     Active Substance: SERTRALINE HYDROCHLORIDE
     Dosage: UNK
     Dates: start: 202004
  4. LEXAPRO [Concomitant]
     Active Substance: ESCITALOPRAM OXALATE
     Indication: Crying
     Dosage: UNK
  5. LEXAPRO [Concomitant]
     Active Substance: ESCITALOPRAM OXALATE
     Dosage: 40 MILLIGRAM
     Dates: start: 2019
  6. LEXAPRO [Concomitant]
     Active Substance: ESCITALOPRAM OXALATE
     Dosage: 30 MILLIGRAM
  7. LEXAPRO [Concomitant]
     Active Substance: ESCITALOPRAM OXALATE
     Dosage: 15 MILLIGRAM
  8. ABILIFY [Concomitant]
     Active Substance: ARIPIPRAZOLE
     Indication: Crying
     Dosage: UNK
  9. ABILIFY [Concomitant]
     Active Substance: ARIPIPRAZOLE
     Dosage: 20 MILLIGRAM
     Dates: start: 2019
  10. ABILIFY [Concomitant]
     Active Substance: ARIPIPRAZOLE
     Dosage: 10 MILLIGRAM
  11. BUSPIRONE [Concomitant]
     Active Substance: BUSPIRONE HYDROCHLORIDE
     Dosage: UNK
     Dates: start: 2020
  12. BUSPIRONE [Concomitant]
     Active Substance: BUSPIRONE HYDROCHLORIDE
     Dosage: 15 MILLIGRAM, BID
  13. QUETIAPINE [Concomitant]
     Active Substance: QUETIAPINE
     Dosage: UNK
  14. RISPERIDONE [Concomitant]
     Active Substance: RISPERIDONE
     Dosage: UNK
  15. ZONEGRAN [Concomitant]
     Active Substance: ZONISAMIDE
     Dosage: 200 MILLIGRAM, QHS
     Route: 048
  16. LORAZEPAM [Concomitant]
     Active Substance: LORAZEPAM
     Dosage: 0.5 MILLIGRAM, PRN
  17. MELATONIN [Concomitant]
     Active Substance: MELATONIN
     Dosage: UNK
  18. ROBITUSSIN (GUAIFENESIN) [Concomitant]
     Active Substance: GUAIFENESIN
     Dosage: 30 MILLIGRAM, QID
     Route: 048
  19. TYLENOL [Concomitant]
     Active Substance: ACETAMINOPHEN
     Dosage: 500 MILLIGRAM
     Route: 048
  20. DULCOLAX (BISACODYL) [Concomitant]
     Active Substance: BISACODYL
     Indication: Constipation
     Dosage: 10 MILLIGRAM, PRN
     Route: 054
  21. LEVEMIR [Concomitant]
     Active Substance: INSULIN DETEMIR
     Dosage: 6 UNITS
     Route: 058
  22. ATIVAN [Concomitant]
     Active Substance: LORAZEPAM
     Indication: Anxiety
     Dosage: UNK, QID
     Route: 048
  23. MYCOSTATIN [Concomitant]
     Active Substance: NYSTATIN
     Dosage: 1,00,000 UNIT/GRAM, BID
     Route: 061
  24. SENOKOT [Concomitant]
     Active Substance: SENNOSIDES
     Dosage: 8.6 MILLIGRAM
     Route: 048
  25. ATORVASTATIN [Concomitant]
     Active Substance: ATORVASTATIN
     Dosage: 80 MILLIGRAM
  26. CHOLECALCIFEROL [Concomitant]
     Active Substance: CHOLECALCIFEROL
     Dosage: 1000 UNIT
  27. CYANOCOBALAMIN [Concomitant]
     Active Substance: CYANOCOBALAMIN
     Dosage: 500 MICROGRAM
     Route: 048

REACTIONS (9)
  - Cerebrovascular accident [Fatal]
  - Diabetic ketoacidosis [Fatal]
  - Dysphagia [Unknown]
  - Atrial fibrillation [Unknown]
  - Cerebrovascular accident [Unknown]
  - Muscle rigidity [Unknown]
  - Akathisia [Unknown]
  - Fall [Recovered/Resolved]
  - Therapeutic product effect incomplete [Unknown]

NARRATIVE: CASE EVENT DATE: 20210101
